FAERS Safety Report 5704419-8 (Version None)
Quarter: 2008Q2

REPORT INFORMATION
  Report Type: 
  Country: None (occurrence: None)
  Receive Date: 20080414
  Receipt Date: 20080402
  Transmission Date: 20081010
  Serious: Yes (Hospitalization)
  Sender: FDA-Public Use
  Company Number: B0515471A

PATIENT
  Age: 76 Year
  Sex: Male

DRUGS (6)
  1. FORTUM [Suspect]
     Indication: INFLAMMATION
     Route: 042
     Dates: start: 20080126, end: 20080126
  2. ALIMTA [Suspect]
     Indication: BRONCHIAL NEOPLASM
     Route: 042
     Dates: start: 20080117, end: 20080117
  3. OFLOCET [Suspect]
     Indication: INFLAMMATION
     Route: 042
     Dates: start: 20080123, end: 20080125
  4. ROCEPHIN [Suspect]
     Indication: INFLAMMATION
     Route: 042
     Dates: start: 20080123, end: 20080124
  5. TAZOCILLINE [Suspect]
     Indication: INFLAMMATION
     Route: 042
     Dates: start: 20080125, end: 20080125
  6. CIFLOX [Suspect]
     Indication: HYPERTHERMIA
     Route: 042
     Dates: start: 20080125, end: 20080126

REACTIONS (1)
  - PURPURA [None]
